FAERS Safety Report 13653151 (Version 1)
Quarter: 2017Q2

REPORT INFORMATION
  Report Type: Spontaneous
  Country: US (occurrence: US)
  Receive Date: 20170614
  Receipt Date: 20170614
  Transmission Date: 20170830
  Serious: No
  Sender: FDA-Public Use
  Company Number: US-ROCHE-1081179

PATIENT
  Sex: Female

DRUGS (3)
  1. TAXOTERE [Concomitant]
     Active Substance: DOCETAXEL
     Indication: PANCREATIC CARCINOMA
  2. XELODA [Suspect]
     Active Substance: CAPECITABINE
     Indication: PANCREATIC CARCINOMA
     Dosage: 14 DAYS IN 21 DAYS CYCLE; 2000MG IN MORNING AND 1500 MG AFTER DINNER
     Route: 048
     Dates: start: 201201
  3. GEMCITABINE [Concomitant]
     Active Substance: GEMCITABINE\GEMCITABINE HYDROCHLORIDE
     Indication: PANCREATIC CARCINOMA

REACTIONS (3)
  - Abdominal pain [Not Recovered/Not Resolved]
  - Dyspepsia [Recovered/Resolved]
  - Dry skin [Recovered/Resolved]
